FAERS Safety Report 20796918 (Version 3)
Quarter: 2022Q3

REPORT INFORMATION
  Report Type: Spontaneous
  Country: US (occurrence: US)
  Receive Date: 20220506
  Receipt Date: 20220808
  Transmission Date: 20221026
  Serious: Yes (Hospitalization, Other)
  Sender: FDA-Public Use
  Company Number: US-ALLERGAN-2214487US

PATIENT
  Sex: Female

DRUGS (5)
  1. QULIPTA [Suspect]
     Active Substance: ATOGEPANT
     Indication: Migraine
     Dosage: UNK
     Dates: start: 202201, end: 20220413
  2. NURTEC ODT [Concomitant]
     Active Substance: RIMEGEPANT SULFATE
  3. LOSARTAN [Concomitant]
     Active Substance: LOSARTAN
  4. WELLBUTRIN SR [Concomitant]
     Active Substance: BUPROPION HYDROCHLORIDE
     Dosage: UNK
     Dates: end: 20220413
  5. SUMATRIPTAN [Concomitant]
     Active Substance: SUMATRIPTAN

REACTIONS (7)
  - Seizure [Recovered/Resolved]
  - Weight decreased [Unknown]
  - Abdominal pain upper [Unknown]
  - Dehydration [Unknown]
  - Decreased appetite [Unknown]
  - Nausea [Recovered/Resolved]
  - Hepatic enzyme increased [Unknown]

NARRATIVE: CASE EVENT DATE: 20211201
